FAERS Safety Report 10244502 (Version 1)
Quarter: 2014Q1

REPORT INFORMATION
  Report Type: Spontaneous
  Country: US (occurrence: None)
  Receive Date: 20140306
  Receipt Date: 20140306
  Transmission Date: 20141002
  Serious: Yes (Other)
  Sender: FDA-Public Use
  Company Number: 163-21880-13014992

PATIENT
  Age: 74 Year
  Sex: Female
  Weight: 92.22 kg

DRUGS (14)
  1. REVLIMID (LENALIDOMIDE) (25 MILLIGRAM, CAPSULES) [Suspect]
     Indication: PLASMA CELL MYELOMA
     Route: 048
     Dates: start: 20100309
  2. LUMIGAN (BIMATOPROST) (EYE DROPS) [Concomitant]
  3. RESTASIS (CICLOSPORIN) [Concomitant]
  4. ALPHAGAN P (BRIMONIDINE TARTRATE) (DROPS) [Concomitant]
  5. CELEBREX (CELECOXIB) (CAPSULES) [Concomitant]
  6. FUROSEMIDE (TABLETS) [Concomitant]
  7. LIPITOR (ATORVASTATIN) (TABLETS) [Concomitant]
  8. SYNTHROID (LEVOTHYROXINE SODIUM) (TABLETS) [Concomitant]
  9. POTASSIUM CHLORIDE (TABLETS) [Concomitant]
  10. VENLAFAXINE HCL (VENLAFAXINE HYDROCHLORIDE) (TABLETS) [Concomitant]
  11. NEXIUM (ESOMEPRAZOLE) (CAPSULES) [Concomitant]
  12. TEMAZEPAM (CAPSULES) [Concomitant]
  13. SEROQUEL (QUETIAPINE FUMARATE) (TABLETS) [Concomitant]
  14. WARFARIN SODIUM (TABLETS) [Concomitant]

REACTIONS (1)
  - Pulmonary embolism [None]
